FAERS Safety Report 9607534 (Version 2)
Quarter: 2013Q4

REPORT INFORMATION
  Report Type: Spontaneous
  Country: US (occurrence: US)
  Receive Date: 20131009
  Receipt Date: 20131030
  Transmission Date: 20140711
  Serious: Yes (Hospitalization)
  Sender: FDA-Public Use
  Company Number: US-MERCK-1310USA002664

PATIENT
  Age: 58 Year
  Sex: Female

DRUGS (5)
  1. VICTRELIS [Suspect]
     Indication: HEPATITIS C
     Dosage: 800 MG, QD
     Route: 048
     Dates: start: 20121122, end: 20130509
  2. REBETOL [Suspect]
     Dosage: UNK
     Route: 048
  3. PEGINTRON [Suspect]
     Dosage: UNK
     Route: 058
  4. EEMT HS [Concomitant]
     Dosage: UNK
  5. VESICARE [Concomitant]
     Dosage: UNK

REACTIONS (3)
  - Hypertension [Recovering/Resolving]
  - Alopecia [Recovering/Resolving]
  - Fatigue [Recovering/Resolving]
